FAERS Safety Report 15867875 (Version 1)
Quarter: 2019Q1

REPORT INFORMATION
  Report Type: Spontaneous
  Country: US (occurrence: US)
  Receive Date: 20190103
  Receipt Date: 20190103
  Transmission Date: 20190417
  Serious: Yes (Hospitalization)
  Sender: FDA-Public Use
  Company Number: None

PATIENT
  Sex: Female

DRUGS (6)
  1. FERROUS SULF [Concomitant]
     Active Substance: FERROUS SULFATE
  2. SINGULAIR [Concomitant]
     Active Substance: MONTELUKAST SODIUM
  3. HUMIRA [Suspect]
     Active Substance: ADALIMUMAB
     Indication: CROHN^S DISEASE
     Dosage: ?          OTHER FREQUENCY:Q OTHER WK;?
     Route: 058
     Dates: start: 20180111
  4. PULMICORT TURBUHALER [Concomitant]
     Active Substance: BUDESONIDE
  5. CLARITIN [Concomitant]
     Active Substance: LORATADINE
  6. PRENATAL +FE-- [Concomitant]

REACTIONS (1)
  - Wisdom teeth removal [None]
